FAERS Safety Report 6407322-3 (Version None)
Quarter: 2009Q4

REPORT INFORMATION
  Report Type: 
  Country: None (occurrence: None)
  Receive Date: 20091020
  Receipt Date: 20091014
  Transmission Date: 20100525
  Serious: Yes (Other)
  Sender: FDA-Public Use
  Company Number: B0594711A

PATIENT
  Age: 36 Year
  Sex: Female
  Weight: 56 kg

DRUGS (2)
  1. MALARONE [Suspect]
     Indication: MALARIA PROPHYLAXIS
     Dosage: 1TAB PER DAY
     Route: 048
     Dates: start: 20090801, end: 20090820
  2. EMLA [Suspect]
     Indication: FEAR OF NEEDLES
     Route: 061
     Dates: start: 20090918

REACTIONS (4)
  - ABORTION MISSED [None]
  - ABORTION SPONTANEOUS [None]
  - BLIGHTED OVUM [None]
  - DRUG EXPOSURE DURING PREGNANCY [None]
